FAERS Safety Report 7057315-0 (Version None)
Quarter: 2010Q4

REPORT INFORMATION
  Report Type: 
  Country: None (occurrence: None)
  Receive Date: 20101022
  Receipt Date: 20101021
  Transmission Date: 20110411
  Serious: Yes (Hospitalization)
  Sender: FDA-Public Use
  Company Number: IT-BRISTOL-MYERS SQUIBB COMPANY-15322670

PATIENT
  Age: 45 Year
  Sex: Male

DRUGS (3)
  1. ABILIFY [Suspect]
     Route: 030
     Dates: start: 20100924
  2. ABILIFY [Suspect]
     Route: 048
     Dates: start: 20100924
  3. LORAZEPAM [Concomitant]
     Dosage: LORAZEPAM ORAL DROPS SOLUTION.
     Route: 048

REACTIONS (1)
  - HICCUPS [None]
